FAERS Safety Report 10163583 (Version 2)
Quarter: 2014Q2

REPORT INFORMATION
  Report Type: Spontaneous
  Country: US (occurrence: US)
  Receive Date: 20140509
  Receipt Date: 20140509
  Transmission Date: 20141212
  Serious: Yes (Hospitalization)
  Sender: FDA-Public Use
  Company Number: US-BANPHARM-20142661

PATIENT
  Age: 34 Year
  Sex: Female

DRUGS (6)
  1. VALPROIC ACID UNKNOWN PRODUCT [Suspect]
     Indication: DISTURBANCE IN ATTENTION
     Dosage: 40MG, QD,
     Route: 048
     Dates: start: 20130831
  2. VALPROIC ACID UNKNOWN PRODUCT [Suspect]
     Dosage: 80 MG,
     Route: 048
     Dates: start: 2005
  3. DEPAKOTE [Concomitant]
  4. LAMICTAL [Concomitant]
     Dates: start: 2000
  5. LAMOTRIGINE [Concomitant]
  6. LEVOTHYROXINE [Concomitant]

REACTIONS (10)
  - Tachyphrenia [Recovering/Resolving]
  - Delusion [Recovering/Resolving]
  - Anger [Recovering/Resolving]
  - Screaming [Recovering/Resolving]
  - Overwork [Recovering/Resolving]
  - Acne [Recovering/Resolving]
  - Aggression [Recovering/Resolving]
  - Anxiety [Recovering/Resolving]
  - Off label use [Recovering/Resolving]
  - Weight decreased [Recovering/Resolving]
